FAERS Safety Report 21804629 (Version 1)
Quarter: 2023Q1

REPORT INFORMATION
  Report Type: Report from Study
  Country: US (occurrence: US)
  Receive Date: 20230102
  Receipt Date: 20230102
  Transmission Date: 20230418
  Serious: No
  Sender: FDA-Public Use
  Company Number: US-ABBVIE-4210089

PATIENT
  Sex: Female

DRUGS (2)
  1. SKYRIZI [Suspect]
     Active Substance: RISANKIZUMAB-RZAA
     Indication: Psoriasis
     Dosage: 150 MG TAKEN AT WEEK 0
     Route: 058
     Dates: start: 20220812, end: 20220812
  2. SKYRIZI [Suspect]
     Active Substance: RISANKIZUMAB-RZAA
     Dosage: 150 MG TAKEN AT WEEK WEEK 4
     Route: 058
     Dates: start: 202209, end: 202209

REACTIONS (1)
  - Nasopharyngitis [Recovering/Resolving]
